FAERS Safety Report 8867051 (Version 1)
Quarter: 2012Q4

REPORT INFORMATION
  Report Type: 
  Country: US (occurrence: US)
  Receive Date: 20121025
  Receipt Date: 20121025
  Transmission Date: 20130627
  Serious: No
  Sender: FDA-Public Use
  Company Number: US-ROXANE LABORATORIES, INC.-2012-RO-02012RO

PATIENT
  Sex: Female

DRUGS (4)
  1. MORPHINE [Suspect]
     Indication: COMPLEX REGIONAL PAIN SYNDROME
     Route: 048
     Dates: start: 20120802, end: 20120803
  2. ACTIQ [Concomitant]
  3. DILAUDID [Concomitant]
  4. LYRICA [Concomitant]

REACTIONS (6)
  - Vomiting [Unknown]
  - Nausea [Not Recovered/Not Resolved]
  - Weight decreased [Not Recovered/Not Resolved]
  - Gastrointestinal disorder [Unknown]
  - Eating disorder [Not Recovered/Not Resolved]
  - Constipation [Not Recovered/Not Resolved]
